FAERS Safety Report 8814438 (Version 3)
Quarter: 2012Q4

REPORT INFORMATION
  Report Type: 
  Country: US (occurrence: US)
  Receive Date: 20120928
  Receipt Date: 20121112
  Transmission Date: 20130627
  Serious: Yes (Other)
  Sender: FDA-Public Use
  Company Number: US-PFIZER INC-2012238384

PATIENT
  Age: 73 Year
  Sex: Male
  Weight: 99.77 kg

DRUGS (2)
  1. TIKOSYN [Suspect]
     Indication: ATRIAL FIBRILLATION
     Dosage: 500 ug, 2x/day
     Route: 048
     Dates: end: 20120219
  2. TIKOSYN [Suspect]
     Dosage: 250 ug, 2x/day
     Route: 048
     Dates: start: 20120920

REACTIONS (4)
  - Cardiac disorder [Unknown]
  - Malaise [Not Recovered/Not Resolved]
  - Feeling abnormal [Not Recovered/Not Resolved]
  - Wrong technique in drug usage process [Unknown]
